FAERS Safety Report 4647131-9 (Version None)
Quarter: 2005Q2

REPORT INFORMATION
  Report Type: 
  Country: None (occurrence: None)
  Receive Date: 20050428
  Receipt Date: 20050418
  Transmission Date: 20051028
  Serious: Yes (Hospitalization)
  Sender: FDA-Public Use
  Company Number: CH-JNJFOC-20050404957

PATIENT
  Age: 61 Year

DRUGS (2)
  1. INFLIXIMAB [Suspect]
     Indication: CROHN'S DISEASE
     Route: 042
  2. AZATHIOPRINE [Concomitant]
     Dosage: 100-200 MG/DAY

REACTIONS (4)
  - B-CELL LYMPHOMA [None]
  - PNEUMONIA [None]
  - T-CELL LYMPHOMA [None]
  - THERAPY NON-RESPONDER [None]
